FAERS Safety Report 21999865 (Version 1)
Quarter: 2023Q1

REPORT INFORMATION
  Report Type: Spontaneous
  Country: AU (occurrence: AU)
  Receive Date: 20230216
  Receipt Date: 20230216
  Transmission Date: 20230418
  Serious: Yes (Other)
  Sender: FDA-Public Use
  Company Number: AU-PFIZER INC-PV202300029415

PATIENT
  Age: 34 Year
  Sex: Male

DRUGS (5)
  1. INFLIXIMAB [Suspect]
     Active Substance: INFLIXIMAB
     Dosage: UNKNOWN
  2. ADALIMUMAB [Suspect]
     Active Substance: ADALIMUMAB
     Dosage: UNKNOWN
  3. USTEKINUMAB [Suspect]
     Active Substance: USTEKINUMAB
     Dosage: UNKNOWN
  4. AZATHIOPRINE [Concomitant]
     Active Substance: AZATHIOPRINE
     Dosage: UNKNOWN
  5. VEDOLIZUMAB [Concomitant]
     Active Substance: VEDOLIZUMAB
     Dosage: UNKNOWN

REACTIONS (5)
  - Anaphylactic reaction [Unknown]
  - Crohn^s disease [Unknown]
  - Erectile dysfunction [Unknown]
  - Metastatic cutaneous Crohn^s disease [Unknown]
  - Therapeutic product effect decreased [Unknown]
